FAERS Safety Report 10470428 (Version 1)
Quarter: 2014Q3

REPORT INFORMATION
  Report Type: Spontaneous
  Country: US (occurrence: None)
  Receive Date: 20140922
  Receipt Date: 20140922
  Transmission Date: 20150326
  Serious: Yes (Disabling, Other)
  Sender: FDA-Public Use
  Company Number: None

PATIENT
  Age: 48 Year
  Sex: Female
  Weight: 86.18 kg

DRUGS (1)
  1. TOPIRAMATE 50 MG [Suspect]
     Active Substance: TOPIRAMATE
     Indication: MIGRAINE WITH AURA
     Dosage: 2 PILLS  TWICE DAILY  TAKEN BY MOUTH?3 1/2 MONTHS
     Route: 048

REACTIONS (21)
  - Acne [None]
  - Gingival inflammation [None]
  - Mood altered [None]
  - Fatigue [None]
  - Poor quality sleep [None]
  - Alopecia [None]
  - Rash [None]
  - Hair growth abnormal [None]
  - Withdrawal syndrome [None]
  - Pruritus [None]
  - Impaired healing [None]
  - Musculoskeletal pain [None]
  - Anger [None]
  - Loose tooth [None]
  - Visual impairment [None]
  - Ulcer [None]
  - Arthralgia [None]
  - Back pain [None]
  - Neck pain [None]
  - Product substitution issue [None]
  - Suicidal ideation [None]

NARRATIVE: CASE EVENT DATE: 20140828
